FAERS Safety Report 12823731 (Version 1)
Quarter: 2016Q4

REPORT INFORMATION
  Report Type: Spontaneous
  Country: US (occurrence: US)
  Receive Date: 20161007
  Receipt Date: 20161007
  Transmission Date: 20170207
  Serious: Yes (Other)
  Sender: FDA-Public Use
  Company Number: US-INDIVIOR LIMITED-INDV-090558-2016

PATIENT
  Sex: Male

DRUGS (1)
  1. SUBOXONE [Suspect]
     Active Substance: BUPRENORPHINE HYDROCHLORIDE\NALOXONE HYDROCHLORIDE
     Indication: DRUG DEPENDENCE
     Dosage: 8 MG, BID, FOR ABOUT 6 MONTHS
     Route: 060

REACTIONS (6)
  - Hepatomegaly [Unknown]
  - Hepatic enzyme increased [Unknown]
  - Fatigue [Unknown]
  - Feeling abnormal [Unknown]
  - Intentional product misuse [Recovered/Resolved]
  - Hepatic pain [Unknown]
